FAERS Safety Report 4828195-6 (Version None)
Quarter: 2005Q4

REPORT INFORMATION
  Report Type: 
  Country: None (occurrence: None)
  Receive Date: 20051115
  Receipt Date: 20051010
  Transmission Date: 20060501
  Serious: Yes (Hospitalization)
  Sender: FDA-Public Use
  Company Number: FR-GLAXOSMITHKLINE-B0397930A

PATIENT
  Age: 50 Year
  Sex: Male
  Weight: 85 kg

DRUGS (3)
  1. PAROXETINE HYDROCHLORIDE [Suspect]
     Indication: DEPRESSION
     Dosage: 20MG PER DAY
     Route: 048
  2. TIAPRIDAL [Suspect]
     Dosage: 100MG PER DAY
     Route: 048
  3. TRANXENE [Concomitant]
     Route: 048

REACTIONS (9)
  - COMA [None]
  - EYE MOVEMENT DISORDER [None]
  - HYPERHIDROSIS [None]
  - HYPERTONIA [None]
  - OVERDOSE [None]
  - PYREXIA [None]
  - SEROTONIN SYNDROME [None]
  - SUICIDE ATTEMPT [None]
  - TACHYCARDIA [None]
